FAERS Safety Report 7826900-8 (Version None)
Quarter: 2011Q4

REPORT INFORMATION
  Report Type: 
  Country: None (occurrence: None)
  Receive Date: 20111018
  Receipt Date: 20111004
  Transmission Date: 20120403
  Serious: Yes (Life-Threatening, Hospitalization, Other)
  Sender: FDA-Public Use
  Company Number: 1066817

PATIENT
  Age: 4 Year
  Sex: Male
  Weight: 17.2 kg

DRUGS (22)
  1. VORICONAZOLE [Concomitant]
  2. SPIRONOLACTONE [Concomitant]
  3. ALDEMTUZUMAB [Suspect]
     Indication: PRODUCT USED FOR UNKNOWN INDICATION
     Dosage: 5.1 MG MILLIGRAMS), INTRAVENOUS (NOT OTHERWISE SPECIFIED)
     Route: 042
     Dates: start: 20110621, end: 20110623
  4. ALLOPURINOL [Concomitant]
  5. ONDANSETRON [Concomitant]
  6. PENTAMIDINE [Concomitant]
  7. PHENYTOIN [Concomitant]
  8. THIOTEPA [Concomitant]
  9. HYDROCORTISONE [Concomitant]
  10. BUSULFAN [Suspect]
     Indication: BONE MARROW FAILURE
     Dosage: 252 MG MILLIGRAM(S), ORAL
     Route: 048
     Dates: start: 20110620, end: 20110623
  11. ACYCLOVIR [Concomitant]
  12. CHLORPHENIRAMINE MALEATE [Concomitant]
  13. ENBREL [Concomitant]
  14. LANSOPRAZOLE [Concomitant]
  15. MEPERIDINE HCL [Concomitant]
  16. VITAMIN K TAB [Concomitant]
  17. CYCLOSPORINE [Concomitant]
  18. ACETAMINOPHEN [Concomitant]
  19. METHOTREXATE [Suspect]
     Indication: PROPHYLAXIS AGAINST GRAFT VERSUS HOST DISEASE
     Dosage: 14.2 MG MILLIGRAM(S), INTRAVENOUS (NOT OTHERWISE SPECIFIED)
     Route: 042
     Dates: start: 20110703, end: 20110706
  20. CYCLOPHOSPHAMIDE [Suspect]
     Indication: BONE MARROW FAILURE
     Dosage: 3440 MG MILLIGRAM(S), INTRAVENOUS (NOT OTHERWISE SPECIFIED)
     Route: 042
     Dates: start: 20110624, end: 20110627
  21. CIPROFLOXACIN [Concomitant]
  22. URSODIOL [Concomitant]

REACTIONS (12)
  - FLUID OVERLOAD [None]
  - JAUNDICE [None]
  - HEPATOMEGALY [None]
  - VENOOCCLUSIVE LIVER DISEASE [None]
  - WEIGHT INCREASED [None]
  - REFRACTORINESS TO PLATELET TRANSFUSION [None]
  - PYREXIA [None]
  - ASCITES [None]
  - TACHYPNOEA [None]
  - HYPOXIA [None]
  - PLEURAL EFFUSION [None]
  - HAEMATEMESIS [None]
